FAERS Safety Report 4902007-4 (Version None)
Quarter: 2006Q1

REPORT INFORMATION
  Report Type: 
  Country: None (occurrence: None)
  Receive Date: 20060202
  Receipt Date: 20060123
  Transmission Date: 20060701
  Serious: Yes (Hospitalization)
  Sender: FDA-Public Use
  Company Number: HQWYE526427JAN06

PATIENT
  Age: 54 Year
  Sex: Female
  Weight: 70.37 kg

DRUGS (3)
  1. PREMPRO [Suspect]
     Indication: HORMONE REPLACEMENT THERAPY
     Dosage: 1 TABLET 1X PER 1 DAY, ORAL
     Route: 048
     Dates: start: 20050101
  2. FLEXERIL [Concomitant]
  3. ASPIRIN [Concomitant]

REACTIONS (4)
  - BURNING SENSATION [None]
  - CARPAL TUNNEL SYNDROME [None]
  - PARAESTHESIA [None]
  - RASH [None]
